FAERS Safety Report 19572730 (Version 4)
Quarter: 2023Q4

REPORT INFORMATION
  Report Type: Report from Study
  Country: AT (occurrence: AT)
  Receive Date: 20210716
  Receipt Date: 20231102
  Transmission Date: 20240110
  Serious: Yes (Hospitalization)
  Sender: FDA-Public Use
  Company Number: AT-CELLTRION HEALTHCARE HUNGARY KFT-2019AT028758

PATIENT
  Age: 78 Year
  Sex: Female
  Weight: 58 kg

DRUGS (26)
  1. PACLITAXEL [Suspect]
     Active Substance: PACLITAXEL
     Indication: Breast cancer metastatic
     Dosage: 129.61 MG, EVERY WEEK
     Route: 042
     Dates: start: 20180810, end: 20180824
  2. PACLITAXEL [Suspect]
     Active Substance: PACLITAXEL
     Dosage: 279.32 MG, WEEKLY (EVERY WEEK)
     Route: 042
     Dates: start: 20180921, end: 20180921
  3. PACLITAXEL [Suspect]
     Active Substance: PACLITAXEL
     Dosage: 127.69 MG, WEEKLY
     Route: 042
     Dates: start: 20180928, end: 20181019
  4. TRASTUZUMAB [Suspect]
     Active Substance: TRASTUZUMAB
     Indication: HER2 positive breast cancer
     Dosage: 464 MG, EVERY 3 WEEKS,MOST RECENT DOSE PRIOR TO THE EVENT: 21SEP2018
     Route: 042
     Dates: start: 20180810, end: 20180810
  5. TRASTUZUMAB [Suspect]
     Active Substance: TRASTUZUMAB
     Dosage: 336 MG
     Route: 042
     Dates: start: 20180921, end: 20181106
  6. LETROZOLE [Suspect]
     Active Substance: LETROZOLE
     Indication: Breast cancer metastatic
     Dosage: 2.5 MG, OD - ONCE DAILY
     Route: 048
     Dates: start: 20181029
  7. PERTUZUMAB [Suspect]
     Active Substance: PERTUZUMAB
     Indication: Breast cancer metastatic
     Dosage: 840 MG, EVERY 3 WEEKS (MOST RECENT DOSE PRIOR TO THE EVENT: 21SEP2018)
     Route: 042
     Dates: start: 20180810, end: 20180810
  8. PERTUZUMAB [Suspect]
     Active Substance: PERTUZUMAB
     Dosage: 420 MG, EVERY 3 WEEKS
     Route: 042
     Dates: start: 20180921, end: 20190201
  9. DENOSUMAB [Suspect]
     Active Substance: DENOSUMAB
     Indication: HER2 positive breast cancer
     Dosage: EVERY 4 WEEKS
     Route: 058
     Dates: start: 20181012
  10. DEXABENE [Concomitant]
     Dosage: 20 MG, WEEKLY
     Dates: start: 20180810, end: 20181019
  11. LISINOPRIL [Concomitant]
     Active Substance: LISINOPRIL
     Dosage: 20 MG, DAILY
  12. RANITIDINE HYDROCHLORIDE [Concomitant]
     Active Substance: RANITIDINE HYDROCHLORIDE
     Dosage: 4 MG
     Dates: start: 20180810, end: 20181019
  13. METOPROLOL [Concomitant]
     Active Substance: METOPROLOL
     Dosage: 47.5 MG, DAILY
  14. KYTRIL [Concomitant]
     Active Substance: GRANISETRON HYDROCHLORIDE
     Dosage: 3 MG, DAILY
     Dates: start: 20180810, end: 20181019
  15. FENAKUT [Concomitant]
     Dosage: 3 MG, 1 PER WEEK
     Dates: start: 20180810, end: 20181019
  16. ASPIRIN [Concomitant]
     Active Substance: ASPIRIN
     Dosage: UNK
     Dates: start: 20181012, end: 20181115
  17. AMLODIPINE [Concomitant]
     Active Substance: AMLODIPINE BESYLATE
     Dosage: 5 MG
     Dates: start: 201812
  18. VITAMINS WITH MINERALS [Concomitant]
     Active Substance: MINERALS\VITAMINS
     Dosage: UNK
     Dates: start: 20181029
  19. CALCIUM CARBONATE\CHOLECALCIFEROL [Concomitant]
     Active Substance: CALCIUM CARBONATE\CHOLECALCIFEROL
     Dates: start: 20191230
  20. CITRIC ACID MONOHYDRATE\POTASSIUM BICARBONATE\POTASSIUM CITRATE [Concomitant]
     Active Substance: CITRIC ACID MONOHYDRATE\POTASSIUM BICARBONATE\POTASSIUM CITRATE
  21. CIPRALEX [Concomitant]
     Active Substance: ESCITALOPRAM OXALATE
     Dates: start: 201901
  22. DEXAGENTA POS [Concomitant]
  23. PANTOPRAZOLE SODIUM [Concomitant]
     Active Substance: PANTOPRAZOLE SODIUM
     Dosage: 40 MG
  24. LEVOCETIRIZINE DIHYDROCHLORIDE [Concomitant]
     Active Substance: LEVOCETIRIZINE DIHYDROCHLORIDE
     Dosage: 5 MG
  25. RIVASTIGMINE [Concomitant]
     Active Substance: RIVASTIGMINE
  26. GLUCOPHAGE [Concomitant]
     Active Substance: METFORMIN HYDROCHLORIDE
     Indication: Diabetes mellitus
     Dosage: 500 MG

REACTIONS (6)
  - Fatigue [Recovered/Resolved]
  - Epistaxis [Recovered/Resolved]
  - Oedema peripheral [Recovered/Resolved]
  - Anaemia [Recovered/Resolved]
  - Lymphoedema [Recovered/Resolved]
  - Nausea [Recovered/Resolved]

NARRATIVE: CASE EVENT DATE: 20180928
